FAERS Safety Report 5029810-7 (Version None)
Quarter: 2006Q2

REPORT INFORMATION
  Report Type: 
  Country: None (occurrence: None)
  Receive Date: 20060614
  Receipt Date: 20060605
  Transmission Date: 20061013
  Serious: Yes (Other)
  Sender: FDA-Public Use
  Company Number: 2006-06-0340

PATIENT
  Age: 55 Year
  Sex: Female

DRUGS (4)
  1. PEG-INTRON [Suspect]
     Indication: HEPATITIS C
     Dosage: SUBCUTANEOUS
     Route: 058
     Dates: start: 20050527, end: 20060421
  2. RIBASPHERE [Suspect]
     Indication: HEPATITIS C
     Dosage: ORAL
     Route: 048
     Dates: start: 20050527, end: 20060421
  3. AMBIEN [Concomitant]
  4. PRILOSEC [Concomitant]

REACTIONS (3)
  - DRUG WITHDRAWAL SYNDROME [None]
  - GASTROOESOPHAGEAL REFLUX DISEASE [None]
  - SENSATION OF FOREIGN BODY [None]
